FAERS Safety Report 15200909 (Version 4)
Quarter: 2019Q2

REPORT INFORMATION
  Report Type: Report from Study
  Country: US (occurrence: US)
  Receive Date: 20180726
  Receipt Date: 20190525
  Transmission Date: 20190711
  Serious: Yes (Hospitalization, Other)
  Sender: FDA-Public Use
  Company Number: US-AMGEN-USASP2018085782

PATIENT
  Age: 72 Year
  Sex: Female
  Weight: 62.59 kg

DRUGS (15)
  1. CELEXA [Concomitant]
     Active Substance: CITALOPRAM HYDROBROMIDE
     Dosage: 20 MG, QD
     Route: 048
  2. LORAZEPAM. [Concomitant]
     Active Substance: LORAZEPAM
     Indication: ANXIETY
     Dosage: 1 MG, 1/2-1 TABLET QD
     Route: 048
  3. SYNTHROID [Concomitant]
     Active Substance: LEVOTHYROXINE SODIUM
     Dosage: 75 MUG, QD
     Route: 048
  4. CALCIUM [Concomitant]
     Active Substance: CALCIUM
  5. MEDROL [Concomitant]
     Active Substance: METHYLPREDNISOLONE
     Dosage: 4 MG AS DIRECTED
  6. MAGNESIUM CITRATE. [Concomitant]
     Active Substance: MAGNESIUM CITRATE
     Dosage: 8.725 G, AS NECESSARY
     Route: 048
  7. TOPIRAMATE. [Concomitant]
     Active Substance: TOPIRAMATE
     Dosage: 25 MG, BID
     Route: 048
  8. TRAMADOL HCL [Concomitant]
     Active Substance: TRAMADOL HYDROCHLORIDE
     Dosage: UNK
  9. CYCLOBENZAPRINE HCL [Concomitant]
     Active Substance: CYCLOBENZAPRINE HYDROCHLORIDE
     Indication: MUSCLE SPASMS
     Dosage: 10 MG, Q8H AS NECESSARY
  10. CHELATED MAGNESIUM [Concomitant]
     Dosage: 100 MG, UNK
  11. ESTROGEN [Concomitant]
     Active Substance: ESTROGENS
  12. PROLIA [Suspect]
     Active Substance: DENOSUMAB
     Indication: OSTEOPOROSIS POSTMENOPAUSAL
     Dosage: 60 MILLIGRAM, Q6MO
     Route: 065
     Dates: start: 20180301
  13. NEURONTIN [Concomitant]
     Active Substance: GABAPENTIN
     Dosage: 100 MG, UNK
  14. VIACTIV CALCIUM PLUS VITAMIN D + K [Concomitant]
     Dosage: 1500 MG, QD
     Route: 048
  15. ARNICA MONTANA. [Concomitant]
     Active Substance: HOMEOPATHICS
     Dosage: UNK

REACTIONS (29)
  - Multiple fractures [Unknown]
  - Cystitis [Unknown]
  - Myalgia [Not Recovered/Not Resolved]
  - Ill-defined disorder [Unknown]
  - Spinal compression fracture [Unknown]
  - Spinal column injury [Unknown]
  - Gait inability [Unknown]
  - Ligament sprain [Unknown]
  - Back pain [Not Recovered/Not Resolved]
  - Arthralgia [Unknown]
  - Adverse drug reaction [Not Recovered/Not Resolved]
  - Constipation [Unknown]
  - Sciatica [Not Recovered/Not Resolved]
  - Pain [Not Recovered/Not Resolved]
  - Fatigue [Unknown]
  - Malaise [Unknown]
  - Asthma [Unknown]
  - Spinal stenosis [Unknown]
  - Urinary tract infection [Unknown]
  - Musculoskeletal pain [Not Recovered/Not Resolved]
  - Joint range of motion decreased [Unknown]
  - Complex regional pain syndrome [Unknown]
  - Bursitis [Unknown]
  - Spinal osteoarthritis [Not Recovered/Not Resolved]
  - Cervical radiculopathy [Unknown]
  - Blood pressure increased [Unknown]
  - Sacroiliac fracture [Unknown]
  - Flatulence [Not Recovered/Not Resolved]
  - Bone pain [Not Recovered/Not Resolved]

NARRATIVE: CASE EVENT DATE: 2018
